FAERS Safety Report 14177274 (Version 2)
Quarter: 2017Q4

REPORT INFORMATION
  Report Type: Report from Study
  Country: DE (occurrence: DE)
  Receive Date: 20171110
  Receipt Date: 20171211
  Transmission Date: 20180321
  Serious: Yes (Death, Life-Threatening, Hospitalization, Other)
  Sender: FDA-Public Use
  Company Number: DE-ROCHE-2021871

PATIENT
  Age: 72 Year
  Sex: Male
  Weight: 57 kg

DRUGS (2)
  1. INTERFERON ALFA-2A [Suspect]
     Active Substance: INTERFERON ALFA-2A
     Indication: METASTATIC RENAL CELL CARCINOMA
     Route: 065
     Dates: start: 20091026, end: 20100129
  2. BEVACIZUMAB. [Suspect]
     Active Substance: BEVACIZUMAB
     Indication: METASTATIC RENAL CELL CARCINOMA
     Route: 042
     Dates: start: 20091028

REACTIONS (7)
  - Large intestine perforation [Unknown]
  - Diverticulitis [Unknown]
  - Abscess intestinal [Unknown]
  - Sepsis [Unknown]
  - Gastrointestinal perforation [Unknown]
  - Multiple organ dysfunction syndrome [Fatal]
  - Peritonitis [Unknown]

NARRATIVE: CASE EVENT DATE: 20100118
